FAERS Safety Report 11241231 (Version 1)
Quarter: 2015Q3

REPORT INFORMATION
  Report Type: Spontaneous
  Country: DE (occurrence: DE)
  Receive Date: 20150706
  Receipt Date: 20150706
  Transmission Date: 20151125
  Serious: Yes (Life-Threatening, Other)
  Sender: FDA-Public Use
  Company Number: DE-BAYER-2015-061009

PATIENT
  Age: 74 Year
  Sex: Male
  Weight: 116.1 kg

DRUGS (6)
  1. CLOPIDOGREL [Interacting]
     Active Substance: CLOPIDOGREL BISULFATE
     Indication: STENT PLACEMENT
     Dosage: DAILY DOSE 75 MG
     Dates: start: 201502
  2. XARELTO [Interacting]
     Active Substance: RIVAROXABAN
     Indication: CEREBROVASCULAR ACCIDENT PROPHYLAXIS
  3. CLOPIDOGREL [Interacting]
     Active Substance: CLOPIDOGREL BISULFATE
     Indication: PERCUTANEOUS CORONARY INTERVENTION
  4. XARELTO [Suspect]
     Active Substance: RIVAROXABAN
     Indication: ATRIAL FIBRILLATION
     Dosage: 20 MG, QD
     Dates: start: 201501, end: 20150317
  5. ASPIRIN. [Interacting]
     Active Substance: ASPIRIN
     Indication: PERCUTANEOUS CORONARY INTERVENTION
  6. ASPIRIN. [Interacting]
     Active Substance: ASPIRIN
     Indication: STENT PLACEMENT
     Dosage: DAILY DOSE 100 MG
     Dates: start: 201502

REACTIONS (4)
  - Cardiovascular disorder [Recovered/Resolved]
  - Haemorrhage [None]
  - Drug interaction [None]
  - Haemorrhoidal haemorrhage [Recovered/Resolved]

NARRATIVE: CASE EVENT DATE: 20150317
